FAERS Safety Report 7652853-1 (Version None)
Quarter: 2011Q3

REPORT INFORMATION
  Report Type: 
  Country: None (occurrence: None)
  Receive Date: 20110803
  Receipt Date: 20110726
  Transmission Date: 20111222
  Serious: No
  Sender: FDA-Public Use
  Company Number: US-JNJFOC-20110612880

PATIENT
  Sex: Male

DRUGS (6)
  1. INVEGA SUSTENNA [Suspect]
     Indication: SCHIZOAFFECTIVE DISORDER
     Route: 065
     Dates: start: 20110308
  2. INVEGA SUSTENNA [Suspect]
     Indication: BIPOLAR DISORDER
     Route: 065
     Dates: start: 20110308
  3. INVEGA SUSTENNA [Suspect]
     Route: 065
     Dates: start: 20110504
  4. INVEGA SUSTENNA [Suspect]
     Route: 065
     Dates: start: 20110504
  5. INVEGA SUSTENNA [Suspect]
     Route: 065
     Dates: start: 20110405
  6. INVEGA SUSTENNA [Suspect]
     Route: 065
     Dates: start: 20110405

REACTIONS (1)
  - INJECTION SITE MASS [None]
